FAERS Safety Report 6200844-X (Version None)
Quarter: 2009Q2

REPORT INFORMATION
  Report Type: 
  Country: None (occurrence: None)
  Receive Date: 20090522
  Receipt Date: 20081003
  Transmission Date: 20091009
  Serious: Yes (Other)
  Sender: FDA-Public Use
  Company Number: US-ALEXION-A200800192

PATIENT
  Sex: Female

DRUGS (4)
  1. SOLIRIS [Suspect]
     Indication: PAROXYSMAL NOCTURNAL HAEMOGLOBINURIA
     Route: 042
  2. UNSPECIFIED B/P MED [Concomitant]
     Indication: HYPERTENSION
     Dosage: UNK, QD
     Route: 048
  3. UNSPECIFIED INHALER [Concomitant]
     Indication: ASTHMA
     Dosage: UNK, PRN
  4. ADVAIR HFA [Concomitant]
     Indication: ASTHMA
     Dosage: UNK, QD
     Route: 048

REACTIONS (4)
  - ANXIETY [None]
  - NASOPHARYNGITIS [None]
  - NAUSEA [None]
  - PAIN [None]
